FAERS Safety Report 5528635-3 (Version None)
Quarter: 2007Q4

REPORT INFORMATION
  Report Type: 
  Country: None (occurrence: None)
  Receive Date: 20071116
  Receipt Date: 20070316
  Transmission Date: 20080405
  Serious: Yes (Hospitalization)
  Sender: FDA-Public Use
  Company Number: AMAN20070003

PATIENT
  Age: 55 Year
  Sex: Male
  Weight: 112.0385 kg

DRUGS (3)
  1. AMANTADINE HYDROCHLORIDE [Suspect]
     Indication: WEIGHT CONTROL
     Dosage: 100-300 MG QHS, PER ORAL
     Route: 048
     Dates: start: 20021115, end: 20021217
  2. ZYPREXA [Concomitant]
  3. ZOLOFT [Concomitant]

REACTIONS (1)
  - HALLUCINATION, AUDITORY [None]
